FAERS Safety Report 14699325 (Version 2)
Quarter: 2018Q2

REPORT INFORMATION
  Report Type: Spontaneous
  Country: DE (occurrence: DE)
  Receive Date: 20180330
  Receipt Date: 20180522
  Transmission Date: 20180711
  Serious: Yes (Other)
  Sender: FDA-Public Use
  Company Number: DE-BRISTOL-MYERS SQUIBB COMPANY-BMS-2018-027557

PATIENT
  Sex: Male
  Weight: 91 kg

DRUGS (1)
  1. OPDIVO [Suspect]
     Active Substance: NIVOLUMAB
     Indication: RENAL CELL CARCINOMA
     Dosage: 273 MG, UNK
     Route: 042
     Dates: start: 201607

REACTIONS (2)
  - Renal disorder [Unknown]
  - Blood creatinine increased [Unknown]
